FAERS Safety Report 6692902-0 (Version None)
Quarter: 2010Q2

REPORT INFORMATION
  Report Type: 
  Country: None (occurrence: None)
  Receive Date: 20100419
  Receipt Date: 20100407
  Transmission Date: 20101027
  Serious: Yes (Hospitalization)
  Sender: FDA-Public Use
  Company Number: 009784

PATIENT
  Sex: Male
  Weight: 51.5 kg

DRUGS (23)
  1. LEVETIRACETAM [Suspect]
     Indication: EPILEPSY
     Dosage: SEE IMAGE , ORAL
     Route: 048
     Dates: start: 20061127, end: 20070523
  2. LEVETIRACETAM [Suspect]
     Indication: EPILEPSY
     Dosage: SEE IMAGE , ORAL
     Route: 048
     Dates: start: 20070524, end: 20070530
  3. LEVETIRACETAM [Suspect]
     Indication: EPILEPSY
     Dosage: SEE IMAGE , ORAL
     Route: 048
     Dates: start: 20070531, end: 20070613
  4. LEVETIRACETAM [Suspect]
     Indication: EPILEPSY
     Dosage: SEE IMAGE , ORAL
     Route: 048
     Dates: start: 20070614, end: 20070925
  5. LEVETIRACETAM [Suspect]
     Indication: EPILEPSY
     Dosage: SEE IMAGE , ORAL
     Route: 048
     Dates: start: 20070925, end: 20091029
  6. LEVETIRACETAM [Suspect]
     Indication: EPILEPSY
     Dosage: SEE IMAGE , ORAL
     Route: 048
     Dates: start: 20091104, end: 20100402
  7. LEVETIRACETAM [Suspect]
     Indication: EPILEPSY
     Dosage: SEE IMAGE , ORAL
     Route: 048
     Dates: start: 20100406
  8. ZONISAMIDE [Suspect]
     Indication: EPILEPSY
     Dosage: 450 MG, ORAL; 400MG, ORAL; 450 MG ORAL; 420 MG ORAL;  300 MG, ORAL; 300 MG, ORAL
     Route: 048
     Dates: start: 20061127, end: 20070419
  9. ZONISAMIDE [Suspect]
     Indication: EPILEPSY
     Dosage: 450 MG, ORAL; 400MG, ORAL; 450 MG ORAL; 420 MG ORAL;  300 MG, ORAL; 300 MG, ORAL
     Route: 048
     Dates: start: 20070420, end: 20070422
  10. ZONISAMIDE [Suspect]
     Indication: EPILEPSY
     Dosage: 450 MG, ORAL; 400MG, ORAL; 450 MG ORAL; 420 MG ORAL;  300 MG, ORAL; 300 MG, ORAL
     Route: 048
     Dates: start: 20070423, end: 20070426
  11. ZONISAMIDE [Suspect]
     Indication: EPILEPSY
     Dosage: 450 MG, ORAL; 400MG, ORAL; 450 MG ORAL; 420 MG ORAL;  300 MG, ORAL; 300 MG, ORAL
     Route: 048
     Dates: start: 20070427, end: 20091029
  12. ZONISAMIDE [Suspect]
     Indication: EPILEPSY
     Dosage: 450 MG, ORAL; 400MG, ORAL; 450 MG ORAL; 420 MG ORAL;  300 MG, ORAL; 300 MG, ORAL
     Route: 048
     Dates: start: 20091102, end: 20100402
  13. ZONISAMIDE [Suspect]
     Indication: EPILEPSY
     Dosage: 450 MG, ORAL; 400MG, ORAL; 450 MG ORAL; 420 MG ORAL;  300 MG, ORAL; 300 MG, ORAL
     Route: 048
     Dates: start: 20100406
  14. VALSARTAN [Concomitant]
  15. PHENYTOIN [Concomitant]
  16. SODIUM PICOSULFATE [Concomitant]
  17. ZOLPIDEM TARTRATE [Concomitant]
  18. AMLODIPINE BESYLATE [Concomitant]
  19. BUFEXAMAC [Concomitant]
  20. TERBINAFINE HYDROCHLORIDE [Concomitant]
  21. MOSAPRIDE CITRATE [Concomitant]
  22. UNKNOWN [Concomitant]
  23. MEDIUM [Concomitant]

REACTIONS (8)
  - BLOOD PRESSURE DECREASED [None]
  - CALCULUS URINARY [None]
  - CONVULSION [None]
  - DEPRESSED LEVEL OF CONSCIOUSNESS [None]
  - HEART RATE INCREASED [None]
  - INTESTINAL OBSTRUCTION [None]
  - URINARY TRACT INFECTION [None]
  - WRONG TECHNIQUE IN DRUG USAGE PROCESS [None]
